FAERS Safety Report 23728634 (Version 2)
Quarter: 2024Q2

REPORT INFORMATION
  Report Type: Spontaneous
  Country: PK (occurrence: PK)
  Receive Date: 20240410
  Receipt Date: 20240618
  Transmission Date: 20240716
  Serious: Yes (Other)
  Sender: FDA-Public Use
  Company Number: PK-PFIZER INC-PV202400046272

PATIENT
  Age: 65 Year
  Sex: Female

DRUGS (2)
  1. IBRANCE [Suspect]
     Active Substance: PALBOCICLIB
     Indication: Breast cancer
     Dosage: 125MG, 1X/DAY 21 DAYS THEN 7 DAYS OFF
     Route: 048
     Dates: start: 20230302
  2. FEMARA [Concomitant]
     Active Substance: LETROZOLE

REACTIONS (3)
  - Carbohydrate antigen 15-3 increased [Unknown]
  - Pain [Unknown]
  - Neoplasm progression [Unknown]

NARRATIVE: CASE EVENT DATE: 20231118
